FAERS Safety Report 22236182 (Version 1)
Quarter: 2023Q2

REPORT INFORMATION
  Report Type: Spontaneous
  Country: US (occurrence: US)
  Receive Date: 20230420
  Receipt Date: 20230420
  Transmission Date: 20230722
  Serious: No
  Sender: FDA-Public Use
  Company Number: US-ANIPHARMA-2022-US-024719

PATIENT
  Age: 38 Year
  Sex: Male
  Weight: 120.2 kg

DRUGS (16)
  1. PROPRANOLOL HYDROCHLORIDE [Suspect]
     Active Substance: PROPRANOLOL HYDROCHLORIDE
     Indication: Hypertension
     Dosage: ADMINISTERED DAILY
     Route: 048
     Dates: start: 2009, end: 201411
  2. Tylenol No. 8 [Concomitant]
  3. SILDENAFIL [Concomitant]
     Active Substance: SILDENAFIL
  4. LIDOCAINE PATCH [Concomitant]
     Active Substance: LIDOCAINE
  5. VOLTAREN [Concomitant]
     Active Substance: DICLOFENAC SODIUM
  6. TYLENOL EXTRA STRENGTH [Concomitant]
     Active Substance: ACETAMINOPHEN
  7. UNSPECIFIED INGREDIENT [Concomitant]
     Active Substance: UNSPECIFIED INGREDIENT
  8. MELOXICAM [Concomitant]
     Active Substance: MELOXICAM
  9. RISPERDAL [Suspect]
     Active Substance: RISPERIDONE
     Indication: Product used for unknown indication
     Dosage: ADMINISTERED DAILY
  10. LISINOPRIL [Suspect]
     Active Substance: LISINOPRIL
     Indication: Product used for unknown indication
     Dosage: ADMIISTERED DAILY
  11. METFORMIN [Suspect]
     Active Substance: METFORMIN HYDROCHLORIDE
     Indication: Product used for unknown indication
     Dosage: ADMINISTERED DAILY
  12. NORVASC [Suspect]
     Active Substance: AMLODIPINE BESYLATE
     Indication: Product used for unknown indication
     Dosage: ADMINISTERED DAILY
  13. TRILAFON [Suspect]
     Active Substance: PERPHENAZINE
     Indication: Product used for unknown indication
     Dosage: ADMINISTERED DAILY
  14. CYCLOBENZAPRINE [Concomitant]
     Active Substance: CYCLOBENZAPRINE
  15. ATENOLOL [Concomitant]
     Active Substance: ATENOLOL
  16. CHONDROITIN SULFATE (BOVINE)\GLUCOSAMINE HYDROCHLORIDE [Concomitant]
     Active Substance: CHONDROITIN SULFATE (BOVINE)\GLUCOSAMINE HYDROCHLORIDE

REACTIONS (10)
  - Feeling abnormal [Recovered/Resolved]
  - Weight increased [Unknown]
  - Swelling [Recovered/Resolved]
  - Pain [Recovered/Resolved]
  - Scar [Not Recovered/Not Resolved]
  - Listless [Recovered/Resolved]
  - Abdominal discomfort [Recovered/Resolved]
  - Disturbance in attention [Recovered/Resolved]
  - Affect lability [Recovered/Resolved]
  - Dizziness [Recovered/Resolved]

NARRATIVE: CASE EVENT DATE: 20090101
